FAERS Safety Report 15688975 (Version 1)
Quarter: 2018Q4

REPORT INFORMATION
  Report Type: Spontaneous
  Country: US (occurrence: US)
  Receive Date: 20181121
  Receipt Date: 20181121
  Transmission Date: 20190205
  Serious: Yes (Other)
  Sender: FDA-Public Use
  Company Number: None

PATIENT
  Age: 55 Year
  Sex: Female
  Weight: 81.65 kg

DRUGS (1)
  1. BENADRYL [Suspect]
     Active Substance: DIPHENHYDRAMINE HYDROCHLORIDE
     Indication: ANAESTHESIA
     Dosage: ?          OTHER ROUTE:INJECTED UNDER SKIN ON FACE?
     Dates: start: 20180522, end: 20180522

REACTIONS (5)
  - Eye swelling [None]
  - Pain [None]
  - Face oedema [None]
  - Incorrect route of product administration [None]
  - Procedural complication [None]

NARRATIVE: CASE EVENT DATE: 20180522
